FAERS Safety Report 9227838 (Version 1)
Quarter: 2013Q2

REPORT INFORMATION
  Report Type: Spontaneous
  Country: US (occurrence: US)
  Receive Date: 20130412
  Receipt Date: 20130412
  Transmission Date: 20140414
  Serious: Yes (Other)
  Sender: FDA-Public Use
  Company Number: US-PFIZER INC-2013111303

PATIENT
  Age: 24 Year
  Sex: Male

DRUGS (1)
  1. XALKORI [Suspect]
     Indication: FIBROMA
     Dosage: 250 MG, 2X/DAY
     Dates: start: 201110

REACTIONS (5)
  - Off label use [Unknown]
  - Weight decreased [Unknown]
  - Decreased appetite [Unknown]
  - Blood testosterone decreased [Unknown]
  - Drug intolerance [Unknown]
